FAERS Safety Report 8961590 (Version 1)
Quarter: 2012Q4

REPORT INFORMATION
  Report Type: 
  Country: US (occurrence: US)
  Receive Date: 20121213
  Receipt Date: 20121213
  Transmission Date: 20130627
  Serious: No
  Sender: FDA-Public Use
  Company Number: US-ALLERGAN-1216062US

PATIENT
  Age: 57 Year
  Sex: Female

DRUGS (1)
  1. LUMIGAN� 0.01% [Suspect]
     Indication: DRUG USE FOR UNKNOWN INDICATION
     Dosage: 2 Gtt, qhs
     Route: 047
     Dates: start: 20121031, end: 20121101

REACTIONS (1)
  - Ocular hyperaemia [Recovering/Resolving]
